FAERS Safety Report 22085953 (Version 1)
Quarter: 2023Q1

REPORT INFORMATION
  Report Type: Spontaneous
  Country: TH (occurrence: TH)
  Receive Date: 20230310
  Receipt Date: 20230310
  Transmission Date: 20230417
  Serious: Yes (Hospitalization)
  Sender: FDA-Public Use
  Company Number: TH-BoehringerIngelheim-2023-BI-223236

PATIENT
  Age: 77 Year
  Sex: Male

DRUGS (3)
  1. TIOTROPIUM [Suspect]
     Active Substance: TIOTROPIUM
     Indication: Chronic obstructive pulmonary disease
  2. OLODATEROL\TIOTROPIUM [Suspect]
     Active Substance: OLODATEROL\TIOTROPIUM
     Indication: Chronic obstructive pulmonary disease
  3. FLUTICASONE PROPIONATE/SALMETEROL ACCUHALER [Concomitant]
     Indication: Chronic obstructive pulmonary disease
     Dosage: 1000 MCG OF FLUTICASONE PROPIONATE/100 MCG OF SALMETEROL ACCUHALER

REACTIONS (4)
  - Viral infection [Recovered/Resolved]
  - Chronic obstructive pulmonary disease [Recovered/Resolved]
  - Chronic obstructive pulmonary disease [Recovered/Resolved]
  - Chronic obstructive pulmonary disease [Recovered/Resolved]
